FAERS Safety Report 11642516 (Version 2)
Quarter: 2015Q4

REPORT INFORMATION
  Report Type: Report from Study
  Country: US (occurrence: US)
  Receive Date: 20151019
  Receipt Date: 20151105
  Transmission Date: 20160304
  Serious: Yes (Hospitalization)
  Sender: FDA-Public Use
  Company Number: US-ABBVIE-15K-163-1480356-00

PATIENT
  Age: 76 Year
  Sex: Female

DRUGS (2)
  1. HUMIRA [Suspect]
     Active Substance: ADALIMUMAB
     Indication: COLITIS ULCERATIVE
     Route: 058
     Dates: start: 20140131, end: 20151002
  2. HUMIRA [Suspect]
     Active Substance: ADALIMUMAB
     Route: 058
     Dates: start: 20151017

REACTIONS (4)
  - Abdominal pain [Recovered/Resolved]
  - Appendicitis [Recovered/Resolved]
  - Umbilical hernia [Recovering/Resolving]
  - Incision site abscess [Recovering/Resolving]

NARRATIVE: CASE EVENT DATE: 20151009
